FAERS Safety Report 20172333 (Version 1)
Quarter: 2021Q4

REPORT INFORMATION
  Report Type: Spontaneous
  Country: IT (occurrence: IT)
  Receive Date: 20211210
  Receipt Date: 20211210
  Transmission Date: 20220303
  Serious: Yes (Death, Other)
  Sender: FDA-Public Use
  Company Number: IT-GILEAD-2021-0560748

PATIENT
  Sex: Female

DRUGS (1)
  1. YESCARTA [Suspect]
     Active Substance: AXICABTAGENE CILOLEUCEL
     Indication: Lymphoma
     Dosage: UNK
     Route: 065
     Dates: start: 20210715, end: 20210715

REACTIONS (4)
  - Lymphoma [Fatal]
  - Cytokine release syndrome [Unknown]
  - Neurological symptom [Unknown]
  - Infection [Unknown]
